FAERS Safety Report 19080914 (Version 1)
Quarter: 2021Q2

REPORT INFORMATION
  Report Type: Report from Study
  Country: JP (occurrence: JP)
  Receive Date: 20210401
  Receipt Date: 20210401
  Transmission Date: 20210717
  Serious: Yes (Hospitalization, Other)
  Sender: FDA-Public Use
  Company Number: JP-TEVA-2021-JP-1895603

PATIENT
  Age: 11 Year
  Sex: Female

DRUGS (5)
  1. CYCLOSPORINE A [Suspect]
     Active Substance: CYCLOSPORINE
     Indication: NEUTROPENIA
     Dosage: 2.4 MG/KG/DAY
     Route: 048
  2. FLUCONAZOLE. [Concomitant]
     Active Substance: FLUCONAZOLE
     Indication: PROPHYLAXIS
     Route: 065
  3. PREDNISOLONE. [Suspect]
     Active Substance: PREDNISOLONE
     Indication: PANCYTOPENIA
     Dosage: 1.2 MG/KG/DAY
     Route: 065
  4. VARICELLA?ZOSTER VACCINE [Suspect]
     Active Substance: VARICELLA-ZOSTER VIRUS STRAIN OKA/MERCK LIVE ANTIGEN
     Indication: VARICELLA IMMUNISATION
     Route: 065
  5. CLARITHROMYCIN. [Concomitant]
     Active Substance: CLARITHROMYCIN
     Indication: PROPHYLAXIS
     Route: 065

REACTIONS (4)
  - Laryngitis viral [Recovering/Resolving]
  - Laryngeal oedema [Recovering/Resolving]
  - Cytomegalovirus infection [Recovering/Resolving]
  - Vaccination failure [Unknown]
